FAERS Safety Report 24301384 (Version 1)
Quarter: 2024Q3

REPORT INFORMATION
  Report Type: Spontaneous
  Country: US (occurrence: US)
  Receive Date: 20240910
  Receipt Date: 20240910
  Transmission Date: 20241016
  Serious: Yes (Other)
  Sender: SPECGX
  Company Number: US-SPECGX-T202401829

PATIENT
  Age: 77 Year
  Sex: Male

DRUGS (8)
  1. POSACONAZOLE [Interacting]
     Active Substance: POSACONAZOLE
     Indication: Aspergillus infection
     Dosage: UNK
     Route: 065
  2. IVOSIDENIB [Interacting]
     Active Substance: IVOSIDENIB
     Indication: Isocitrate dehydrogenase gene mutation
     Dosage: UNK
     Route: 048
  3. FLUCONAZOLE [Suspect]
     Active Substance: FLUCONAZOLE
     Indication: Antifungal prophylaxis
     Dosage: UNK
     Route: 065
  4. ISAVUCONAZOLE [Suspect]
     Active Substance: ISAVUCONAZOLE
     Indication: Aspergillus infection
     Dosage: UNK
     Route: 065
  5. DECITABINE [Suspect]
     Active Substance: DECITABINE
     Indication: Myelodysplastic syndrome
     Dosage: UNK
     Route: 065
  6. DECITABINE [Suspect]
     Active Substance: DECITABINE
     Indication: Acute myeloid leukaemia
  7. CEDAZURIDINE [Suspect]
     Active Substance: CEDAZURIDINE
     Indication: Myelodysplastic syndrome
     Dosage: UNK
     Route: 065
  8. CEDAZURIDINE [Suspect]
     Active Substance: CEDAZURIDINE
     Indication: Acute myeloid leukaemia

REACTIONS (4)
  - Bronchopulmonary aspergillosis [Unknown]
  - Drug interaction [Unknown]
  - Alanine aminotransferase increased [Unknown]
  - Drug ineffective for unapproved indication [Unknown]
